FAERS Safety Report 9601410 (Version 3)
Quarter: 2013Q4

REPORT INFORMATION
  Report Type: Spontaneous
  Country: US (occurrence: US)
  Receive Date: 20131007
  Receipt Date: 20131122
  Transmission Date: 20140711
  Serious: Yes (Hospitalization)
  Sender: FDA-Public Use
  Company Number: US-BIOGENIDEC-2013BI094912

PATIENT
  Age: 72 Year
  Sex: Female

DRUGS (2)
  1. AVONEX [Suspect]
     Indication: MULTIPLE SCLEROSIS
     Route: 030
     Dates: start: 20111208
  2. AVONEX [Suspect]
     Indication: MULTIPLE SCLEROSIS
     Route: 030
     Dates: end: 20130916

REACTIONS (5)
  - Hernia [Recovered/Resolved]
  - Oesophageal disorder [Recovered/Resolved]
  - Ulcer haemorrhage [Recovered/Resolved]
  - Gastric disorder [Recovered/Resolved]
  - Injection site pain [Recovered/Resolved]
